FAERS Safety Report 15048396 (Version 1)
Quarter: 2018Q2

REPORT INFORMATION
  Report Type: Spontaneous
  Country: FR (occurrence: FR)
  Receive Date: 20180622
  Receipt Date: 20180622
  Transmission Date: 20180711
  Serious: Yes (Death)
  Sender: FDA-Public Use
  Company Number: FR-CONCORDIA PHARMACEUTICALS INC.-E2B_00012794

PATIENT
  Age: 80 Year
  Sex: Female
  Weight: 95 kg

DRUGS (1)
  1. DIGOXIN. [Suspect]
     Active Substance: DIGOXIN
     Indication: ATRIAL FIBRILLATION
     Dates: start: 20180102, end: 20180103

REACTIONS (3)
  - Overdose [Fatal]
  - Cardio-respiratory arrest [Fatal]
  - Cardioactive drug level increased [Fatal]

NARRATIVE: CASE EVENT DATE: 20180103
